FAERS Safety Report 9633238 (Version 1)
Quarter: 2013Q4

REPORT INFORMATION
  Report Type: Spontaneous
  Country: DE (occurrence: None)
  Receive Date: 20131017
  Receipt Date: 20131017
  Transmission Date: 20140711
  Serious: Yes (Congenital Anomaly, Other)
  Sender: FDA-Public Use
  Company Number: VAL-02766_2013

PATIENT
  Sex: Female

DRUGS (5)
  1. METOPROLOL (METOPROLOL - METOPROLOL TARTRATE) [Suspect]
     Indication: MATERNAL EXPOSURE DURING PREGNANCY
     Dosage: (DF [IN THE 3RD TRIMENON]
     Route: 064
  2. SEROQUEL [Suspect]
     Indication: MATERNAL EXPOSURE DURING PREGNANCY
     Dosage: 0- 6TH WEEK OF PREGNANCY
     Route: 064
  3. VALPROINSAEURE RETARD [Concomitant]
  4. FOLSAEURE [Concomitant]
  5. INSULIN [Concomitant]

REACTIONS (4)
  - Caesarean section [None]
  - Breech presentation [None]
  - Genital labial adhesions [None]
  - Maternal exposure during pregnancy [None]
